FAERS Safety Report 14328198 (Version 2)
Quarter: 2018Q1

REPORT INFORMATION
  Report Type: Spontaneous
  Country: AT (occurrence: AT)
  Receive Date: 20171227
  Receipt Date: 20180105
  Transmission Date: 20180509
  Serious: Yes (Other)
  Sender: FDA-Public Use
  Company Number: AT-PFIZER INC-2017442465

PATIENT
  Age: 42 Year
  Sex: Male
  Weight: 89 kg

DRUGS (27)
  1. LYRICA [Interacting]
     Active Substance: PREGABALIN
     Dosage: 450 MG, UNK
     Route: 048
     Dates: start: 20150319
  2. DOMINAL (PROTHIPENDYL HYDROCHLORIDE) [Concomitant]
     Active Substance: PROTHIPENDYL HYDROCHLORIDE
     Dosage: 80 MG, UNK
     Route: 048
     Dates: start: 20150413, end: 20150413
  3. PANTOLOC [Suspect]
     Active Substance: PANTOPRAZOLE SODIUM
     Indication: SLEEP DISORDER
     Dosage: 40 MG, QD
     Route: 065
     Dates: start: 2015
  4. TRITTICO RETARD [Interacting]
     Active Substance: TRAZODONE HYDROCHLORIDE
     Indication: SLEEP DISORDER
     Dosage: 450 MG, UNK
     Route: 048
     Dates: start: 2015, end: 20150316
  5. SEROQUEL [Interacting]
     Active Substance: QUETIAPINE FUMARATE
     Indication: SLEEP DISORDER
     Dosage: 100 MG, 1X/DAY
     Route: 048
     Dates: start: 20150317, end: 20150317
  6. SEROQUEL [Interacting]
     Active Substance: QUETIAPINE FUMARATE
     Dosage: 200 MG, 1X/DAY
     Route: 048
     Dates: start: 20150318
  7. PROXEN /00256201/ [Interacting]
     Active Substance: NAPROXEN
     Dosage: 1000 MG, UNK
     Route: 048
     Dates: start: 20150327
  8. SUBSTITOL [Suspect]
     Active Substance: MORPHINE SULFATE
     Indication: SLEEP DISORDER
     Dosage: 480 MG, 1X/DAY
     Route: 048
     Dates: start: 2014
  9. JATROSOM /00042001/ [Suspect]
     Active Substance: TRANYLCYPROMINE SULFATE\TRIFLUOPERAZINE HYDROCHLORIDE
     Indication: SLEEP DISORDER
     Dosage: 10 MG, 1X/DAY
     Route: 048
     Dates: start: 20150323, end: 20150406
  10. ANTIFLAT [Concomitant]
     Dosage: 3 DF, UNK
     Route: 048
     Dates: start: 20150328
  11. MIRTABENE [Interacting]
     Active Substance: MIRTAZAPINE
     Indication: SLEEP DISORDER
     Dosage: 7.5 MG, 1X/DAY
     Route: 048
     Dates: start: 20150409, end: 20150416
  12. NOCTAMID [Concomitant]
     Active Substance: LORMETAZEPAM
     Dosage: 2 MG, UNK
     Route: 048
     Dates: start: 20150331
  13. DOMINAL (PROTHIPENDYL HYDROCHLORIDE) [Concomitant]
     Active Substance: PROTHIPENDYL HYDROCHLORIDE
     Dosage: 80 MG, UNK
     Route: 048
     Dates: start: 20150323, end: 20150323
  14. DOMINAL (PROTHIPENDYL HYDROCHLORIDE) [Concomitant]
     Active Substance: PROTHIPENDYL HYDROCHLORIDE
     Dosage: 80 MG, UNK
     Route: 048
     Dates: start: 20150409, end: 20150410
  15. TRITTICO RETARD [Interacting]
     Active Substance: TRAZODONE HYDROCHLORIDE
     Dosage: 300 MG, UNK
     Route: 048
     Dates: start: 20150317
  16. DEPAKINE CRONO [Interacting]
     Active Substance: VALPROIC ACID
     Indication: SLEEP DISORDER
     Dosage: 750 MG, 1X/DAY
     Route: 048
     Dates: start: 2015
  17. DOMINAL (PROTHIPENDYL HYDROCHLORIDE) [Concomitant]
     Active Substance: PROTHIPENDYL HYDROCHLORIDE
     Dosage: 160 MG, UNK
     Route: 048
     Dates: start: 20150408, end: 20150408
  18. NOCTAMID [Concomitant]
     Active Substance: LORMETAZEPAM
     Dosage: 1 MG, UNK
     Route: 048
     Dates: start: 20150330, end: 20150330
  19. LYRICA [Interacting]
     Active Substance: PREGABALIN
     Dosage: 375 MG, UNK
     Route: 048
     Dates: start: 20150318, end: 20150318
  20. JATROSOM /00042001/ [Suspect]
     Active Substance: TRANYLCYPROMINE SULFATE\TRIFLUOPERAZINE HYDROCHLORIDE
     Dosage: 30 MG, 1X/DAY
     Route: 048
     Dates: start: 20150414
  21. FERROGRADUMET [Suspect]
     Active Substance: FERROUS SULFATE
     Indication: SLEEP DISORDER
     Dosage: 1 DF, UNK
     Route: 048
     Dates: start: 2015
  22. DOMINAL (PROTHIPENDYL HYDROCHLORIDE) [Concomitant]
     Active Substance: PROTHIPENDYL HYDROCHLORIDE
     Dosage: 80 MG, UNK
     Route: 048
     Dates: start: 20150319, end: 20170319
  23. DOMINAL (PROTHIPENDYL HYDROCHLORIDE) [Concomitant]
     Active Substance: PROTHIPENDYL HYDROCHLORIDE
     Dosage: 80 MG, UNK
     Route: 048
     Dates: start: 20150404, end: 20150404
  24. LYRICA [Suspect]
     Active Substance: PREGABALIN
     Indication: SLEEP DISORDER
     Dosage: 300 MG, UNK
     Route: 048
     Dates: start: 20150317, end: 20150317
  25. JATROSOM /00042001/ [Suspect]
     Active Substance: TRANYLCYPROMINE SULFATE\TRIFLUOPERAZINE HYDROCHLORIDE
     Dosage: 20 MG, 1X/DAY
     Route: 048
     Dates: start: 20150407, end: 20150413
  26. NICORETTE [Suspect]
     Active Substance: NICOTINE
     Dosage: 1 PATCH (DF), (25 MG/16 H)
     Dates: start: 20150321
  27. DOMINAL (PROTHIPENDYL HYDROCHLORIDE) [Concomitant]
     Active Substance: PROTHIPENDYL HYDROCHLORIDE
     Dosage: 80 MG, UNK
     Route: 048
     Dates: start: 20150331, end: 20150331

REACTIONS (8)
  - Oedema peripheral [Recovered/Resolved]
  - Depressed mood [None]
  - Restlessness [None]
  - Pollakiuria [None]
  - Confusional state [None]
  - Nervousness [None]
  - Drug interaction [Unknown]
  - Disorientation [None]

NARRATIVE: CASE EVENT DATE: 20150411
